FAERS Safety Report 8974101 (Version 1)
Quarter: 2012Q4

REPORT INFORMATION
  Report Type: Spontaneous
  Country: US (occurrence: None)
  Receive Date: 20121217
  Receipt Date: 20121217
  Transmission Date: 20130627
  Serious: Yes (Other)
  Sender: FDA-Public Use
  Company Number: None

PATIENT
  Sex: Female
  Weight: 139.26 kg

DRUGS (1)
  1. ENOXAPARIN [Suspect]
     Indication: DVT PROPHYLAXIS
     Dosage: 40mg; Twice/day; 057
     Dates: start: 20110131, end: 20110202

REACTIONS (2)
  - Eye irritation [None]
  - Accidental exposure to product [None]
